FAERS Safety Report 8877112 (Version 1)
Quarter: 2012Q4

REPORT INFORMATION
  Report Type: Spontaneous
  Country: US (occurrence: None)
  Receive Date: 20121101
  Receipt Date: 20121101
  Transmission Date: 20130627
  Serious: No
  Sender: FDA-Public Use
  Company Number: None

PATIENT
  Age: 40 Year
  Sex: Female

DRUGS (3)
  1. COMPAZINE [Suspect]
     Indication: ABDOMINAL PAIN
     Dosage: 10 mg once IM
     Route: 030
     Dates: start: 20120905, end: 20120905
  2. COMPAZINE [Suspect]
     Indication: NAUSEA
     Dosage: 10 mg once IM
     Route: 030
     Dates: start: 20120905, end: 20120905
  3. COMPAZINE [Suspect]
     Indication: VOMITING
     Dosage: 10 mg once IM
     Route: 030
     Dates: start: 20120905, end: 20120905

REACTIONS (5)
  - Photophobia [None]
  - Bone pain [None]
  - Eye irritation [None]
  - Eye pruritus [None]
  - Eye pain [None]
